FAERS Safety Report 7811965-X (Version None)
Quarter: 2011Q4

REPORT INFORMATION
  Report Type: 
  Country: None (occurrence: None)
  Receive Date: 20111013
  Receipt Date: 20111006
  Transmission Date: 20120403
  Serious: Yes (Hospitalization)
  Sender: FDA-Public Use
  Company Number: PHHY2011AU88830

PATIENT
  Sex: Male

DRUGS (4)
  1. TRANEXAMIC ACID [Suspect]
     Dates: start: 20101104
  2. GLIPIZIDE [Concomitant]
  3. ARANESP [Suspect]
     Dosage: 150 MG, UNK
     Route: 058
     Dates: start: 20080803
  4. EXJADE [Suspect]
     Dosage: 600 MG, QD
     Dates: start: 20110310, end: 20110421

REACTIONS (8)
  - TYPE 2 DIABETES MELLITUS [None]
  - RENAL FAILURE ACUTE [None]
  - LIVER FUNCTION TEST ABNORMAL [None]
  - NAUSEA [None]
  - JAUNDICE [None]
  - DECREASED APPETITE [None]
  - LETHARGY [None]
  - BLOOD CREATININE INCREASED [None]
